FAERS Safety Report 4730223-3 (Version None)
Quarter: 2005Q3

REPORT INFORMATION
  Report Type: 
  Country: None (occurrence: None)
  Receive Date: 20050728
  Receipt Date: 20050719
  Transmission Date: 20060218
  Serious: Yes (Hospitalization)
  Sender: FDA-Public Use
  Company Number: 200510527BVD

PATIENT
  Age: 70 Year
  Sex: Female
  Weight: 70 kg

DRUGS (5)
  1. ASPIRIN [Suspect]
     Indication: ARTHRALGIA
     Dosage: 500 MG, TOTAL DAILY, ORAL
     Route: 048
  2. ASPIRIN [Concomitant]
  3. CARVEDILOL [Concomitant]
  4. ESIDRIX [Concomitant]
  5. PANTOZOL           (PANTOPRAZOLE) [Concomitant]

REACTIONS (6)
  - ARTERIOSCLEROSIS [None]
  - ENTEROCOLITIS HAEMORRHAGIC [None]
  - GASTRITIS EROSIVE [None]
  - HAEMATOCHEZIA [None]
  - HYPERTENSION [None]
  - ISCHAEMIA [None]
